FAERS Safety Report 16439003 (Version 2)
Quarter: 2019Q2

REPORT INFORMATION
  Report Type: Report from Study
  Country: CA (occurrence: CA)
  Receive Date: 20190617
  Receipt Date: 20190630
  Transmission Date: 20190711
  Serious: Yes (Other)
  Sender: FDA-Public Use
  Company Number: CA-BEH-2019102219

PATIENT
  Age: 58 Year
  Sex: Male
  Weight: 88 kg

DRUGS (4)
  1. BERINERT [Suspect]
     Active Substance: HUMAN C1-ESTERASE INHIBITOR
     Indication: PROPHYLAXIS
  2. BERINERT [Suspect]
     Active Substance: HUMAN C1-ESTERASE INHIBITOR
     Indication: HEREDITARY ANGIOEDEMA
     Dosage: 3000 IU, BIW (EVERY 3 DAYS)
     Route: 058
     Dates: start: 20190507
  3. BERINERT [Suspect]
     Active Substance: HUMAN C1-ESTERASE INHIBITOR
     Indication: HEREDITARY ANGIOEDEMA
     Dosage: 3000 IU, BIW (EVERY 3 DAYS)
     Route: 058
     Dates: start: 20190507
  4. BERINERT [Suspect]
     Active Substance: HUMAN C1-ESTERASE INHIBITOR
     Indication: PROPHYLAXIS

REACTIONS (5)
  - Product use in unapproved indication [Unknown]
  - Intentional product use issue [Unknown]
  - No adverse event [Unknown]
  - Hereditary angioedema [Recovered/Resolved]
  - Essential tremor [Not Recovered/Not Resolved]
